FAERS Safety Report 7491799 (Version 5)
Quarter: 2013Q1

REPORT INFORMATION
  Report Type: Spontaneous
  Country: BR (occurrence: BR)
  Receive Date: 20100721
  Receipt Date: 20130306
  Transmission Date: 20140127
  Serious: Yes (Other)
  Sender: FDA-Public Use
  Company Number: BR-ROCHE-715962

PATIENT
  Age: 47 None
  Sex: Female
  Weight: 67 kg

DRUGS (9)
  1. RIVOTRIL [Suspect]
     Indication: CONVULSION
     Dosage: TAKEN IN THE MORNING AND AT NIGHT;OTHER INDCTN:TACHYCARDIA
     Route: 048
  2. RIVOTRIL [Suspect]
     Dosage: 10 DROPS IN THE MORNING AND 10 DROPS IN THE NIGHT
     Route: 048
  3. CLONAZEPAM [Suspect]
     Indication: ANXIETY
     Dosage: OTHER INDICATION: TACHYCARDIA.
     Route: 065
  4. URBANYL [Concomitant]
     Indication: EMOTIONAL DISORDER
     Dosage: INDICATION:TO ENHANCE RIVOTRILS EFFECT
     Route: 048
     Dates: start: 2004, end: 2007
  5. URBANYL [Concomitant]
     Route: 065
  6. CARBAMAZEPINE [Concomitant]
     Route: 048
  7. LITHIUM CARBONATE [Concomitant]
     Indication: CRYING
     Route: 048
  8. CELESTONE SOLUSPAN [Concomitant]
     Indication: OPTIC NEURITIS
     Dosage: DOSE 3MG/ML
     Route: 065
     Dates: start: 201006, end: 201007
  9. RUBRANOVA [Concomitant]
     Route: 065
     Dates: start: 20100709, end: 20100711

REACTIONS (26)
  - Accident [Recovered/Resolved]
  - Weight increased [Unknown]
  - Convulsion [Recovered/Resolved]
  - Craniocerebral injury [Unknown]
  - Deafness [Not Recovered/Not Resolved]
  - Blindness [Not Recovered/Not Resolved]
  - Pain [Not Recovered/Not Resolved]
  - Crying [Not Recovered/Not Resolved]
  - Accidental exposure to product [Recovered/Resolved]
  - Amenorrhoea [Recovered/Resolved]
  - Activities of daily living impaired [Not Recovered/Not Resolved]
  - Bone pain [Unknown]
  - Tremor [Unknown]
  - Abdominal pain upper [Not Recovered/Not Resolved]
  - Drug ineffective [Unknown]
  - Breast pain [Recovering/Resolving]
  - Medication error [Unknown]
  - Malaise [Not Recovered/Not Resolved]
  - Headache [Not Recovered/Not Resolved]
  - Somnolence [Not Recovered/Not Resolved]
  - Fall [Not Recovered/Not Resolved]
  - Anaemia [Recovering/Resolving]
  - Insomnia [Not Recovered/Not Resolved]
  - Tachycardia [Not Recovered/Not Resolved]
  - Sleep disorder [Not Recovered/Not Resolved]
  - Suspiciousness [Not Recovered/Not Resolved]
